FAERS Safety Report 6348513-X (Version None)
Quarter: 2009Q3

REPORT INFORMATION
  Report Type: 
  Country: None (occurrence: None)
  Receive Date: 20090911
  Receipt Date: 20090901
  Transmission Date: 20100115
  Serious: Yes (Hospitalization)
  Sender: FDA-Public Use
  Company Number: US-BAYER-200927678NA

PATIENT
  Age: 38 Year
  Sex: Female

DRUGS (8)
  1. BETASERON [Suspect]
     Indication: RELAPSING-REMITTING MULTIPLE SCLEROSIS
     Dosage: TOTAL DAILY DOSE: 4 MIU
     Route: 058
     Dates: start: 20090624
  2. MICARDIS HCTZ [Suspect]
  3. FLEXERIL [Concomitant]
  4. ATACAND [Concomitant]
  5. FISH OIL [Concomitant]
  6. M.V.I. [Concomitant]
  7. IRON [Concomitant]
  8. MICARDIS [Concomitant]

REACTIONS (3)
  - CHEST DISCOMFORT [None]
  - DEHYDRATION [None]
  - DYSPNOEA [None]
